FAERS Safety Report 14313529 (Version 2)
Quarter: 2020Q1

REPORT INFORMATION
  Report Type: Spontaneous
  Country: IE (occurrence: IE)
  Receive Date: 20171221
  Receipt Date: 20200204
  Transmission Date: 20200409
  Serious: Yes (Life-Threatening, Hospitalization, Other)
  Sender: FDA-Public Use
  Company Number: IE-AUROBINDO-AUR-APL-2017-46382

PATIENT
  Age: 35 Year
  Sex: Female
  Weight: 91 kg

DRUGS (22)
  1. HUMALOG [Suspect]
     Active Substance: INSULIN LISPRO
     Dosage: 86 INTERNATIONAL UNIT
     Route: 058
  2. HUMALOG [Suspect]
     Active Substance: INSULIN LISPRO
     Dosage: 86 INTERNATIONAL UNIT
     Route: 058
  3. LANTUS [Suspect]
     Active Substance: INSULIN GLARGINE
     Dosage: 90 INTERNATIONAL UNIT
     Route: 058
  4. LYRICA [Concomitant]
     Active Substance: PREGABALIN
     Indication: PRODUCT USED FOR UNKNOWN INDICATION
     Dosage: UNK
     Route: 065
     Dates: start: 20120907
  5. LANTUS [Suspect]
     Active Substance: INSULIN GLARGINE
     Indication: TYPE 1 DIABETES MELLITUS
     Dosage: 90 INTERNATIONAL UNIT, ONCE A DAY
     Route: 058
  6. LANTUS [Suspect]
     Active Substance: INSULIN GLARGINE
     Dosage: 40 INTERNATIONAL UNIT, ONCE A DAY
     Route: 058
     Dates: start: 20021016
  7. LANTUS [Suspect]
     Active Substance: INSULIN GLARGINE
     Dosage: 46 INTERNATIONAL UNIT, ONCE A DAY
     Route: 058
  8. SERTRALINE HCL [Concomitant]
     Active Substance: SERTRALINE HYDROCHLORIDE
     Indication: PRODUCT USED FOR UNKNOWN INDICATION
     Dosage: UNK
     Route: 065
     Dates: start: 2000
  9. HUMALOG [Suspect]
     Active Substance: INSULIN LISPRO
     Dosage: 90 INTERNATIONAL UNIT
     Route: 058
  10. LANTUS [Suspect]
     Active Substance: INSULIN GLARGINE
     Dosage: 46 INTERNATIONAL UNIT
     Route: 058
  11. FOLIC ACID. [Concomitant]
     Active Substance: FOLIC ACID
     Indication: PRODUCT USED FOR UNKNOWN INDICATION
     Dosage: UNK
     Route: 065
     Dates: start: 20170323
  12. ACTRAPID [Concomitant]
     Active Substance: INSULIN HUMAN
     Indication: PRODUCT USED FOR UNKNOWN INDICATION
     Dosage: 1 INTERNATIONAL UNIT
     Route: 041
     Dates: start: 20170907
  13. LEVOTHYROXINE. [Concomitant]
     Active Substance: LEVOTHYROXINE
     Indication: PRODUCT USED FOR UNKNOWN INDICATION
     Dosage: UNK
     Route: 065
     Dates: start: 20170406
  14. METFORMIN [Suspect]
     Active Substance: METFORMIN HYDROCHLORIDE
     Indication: TYPE 1 DIABETES MELLITUS
     Dosage: 1000 MILLIGRAM, ONCE A DAY
     Route: 065
     Dates: start: 20150408
  15. LANTUS [Suspect]
     Active Substance: INSULIN GLARGINE
     Dosage: 42 INTERNATIONAL UNIT, ONCE A DAY
     Route: 058
  16. LANTUS [Suspect]
     Active Substance: INSULIN GLARGINE
     Dosage: 40 INTERNATIONAL UNIT
     Route: 058
  17. AMITRIPTYLINE [Concomitant]
     Active Substance: AMITRIPTYLINE
     Indication: PRODUCT USED FOR UNKNOWN INDICATION
     Dosage: UNK
     Route: 065
     Dates: start: 20120907
  18. HUMALOG [Suspect]
     Active Substance: INSULIN LISPRO
     Dosage: 86 INTERNATIONAL UNIT, ONCE A DAY
     Route: 058
  19. LANTUS [Suspect]
     Active Substance: INSULIN GLARGINE
     Dosage: 90 INTERNATIONAL UNIT
     Route: 058
  20. HUMALOG [Suspect]
     Active Substance: INSULIN LISPRO
     Indication: TYPE 1 DIABETES MELLITUS
     Dosage: 90 INTERNATIONAL UNIT, ONCE A DAY
     Route: 058
  21. HUMALOG [Suspect]
     Active Substance: INSULIN LISPRO
     Dosage: 72 INTERNATIONAL UNIT, ONCE A DAY
     Route: 058
     Dates: start: 20021016
  22. LANTUS [Suspect]
     Active Substance: INSULIN GLARGINE
     Dosage: 46 INTERNATIONAL UNIT
     Route: 058

REACTIONS (7)
  - Diabetes mellitus inadequate control [Recovered/Resolved]
  - Postpartum haemorrhage [Recovered/Resolved]
  - Caesarean section [Recovered/Resolved]
  - Exposure during pregnancy [Unknown]
  - Hypoglycaemia [Recovered/Resolved]
  - Infection [Unknown]
  - Product use issue [Unknown]

NARRATIVE: CASE EVENT DATE: 20170420
